FAERS Safety Report 25901042 (Version 1)
Quarter: 2025Q4

REPORT INFORMATION
  Report Type: Spontaneous
  Country: EU (occurrence: EU)
  Receive Date: 20251009
  Receipt Date: 20251009
  Transmission Date: 20260118
  Serious: Yes (Hospitalization)
  Sender: RANBAXY
  Company Number: EU-SUN PHARMACEUTICAL INDUSTRIES LTD-2025RR-530746

PATIENT
  Age: 21 Year
  Sex: Male
  Weight: 65.5 kg

DRUGS (3)
  1. SERTRALINE [Suspect]
     Active Substance: SERTRALINE HYDROCHLORIDE
     Indication: Intentional overdose
     Dosage: 30 DOSAGE FORM, DRUG OVERDOSE DELIBERATE SELF-INFLICTED
     Route: 048
     Dates: start: 20250401, end: 20250401
  2. LORAZEPAM [Suspect]
     Active Substance: LORAZEPAM
     Indication: Intentional overdose
     Dosage: 50 DOSAGE FORM, IN TOTAL
     Route: 048
     Dates: start: 20250401, end: 20250401
  3. CYAMEMAZINE [Suspect]
     Active Substance: CYAMEMAZINE
     Indication: Intentional overdose
     Dosage: 750 MILLIGRAM, DRUG OVERDOSE DELIBERATE SELF-INFLICTED
     Route: 048
     Dates: start: 20250401, end: 20250401

REACTIONS (2)
  - Poisoning deliberate [Recovered/Resolved]
  - Confusional state [Recovered/Resolved]

NARRATIVE: CASE EVENT DATE: 20250401
